FAERS Safety Report 5469756-3 (Version None)
Quarter: 2007Q3

REPORT INFORMATION
  Report Type: 
  Country: None (occurrence: None)
  Receive Date: 20070926
  Receipt Date: 20070926
  Transmission Date: 20080115
  Serious: Yes (Other)
  Sender: FDA-Public Use
  Company Number: None

PATIENT
  Age: 16 Year
  Sex: Female
  Weight: 78 kg

DRUGS (1)
  1. CEFOXITIN [Suspect]
     Indication: BACTERIAL INFECTION
     Dosage: 2 GRAMS ONCE IV DRIP
     Route: 041
     Dates: start: 20070920, end: 20070920

REACTIONS (2)
  - PRURITUS [None]
  - RASH MACULO-PAPULAR [None]
